FAERS Safety Report 6086305-X (Version None)
Quarter: 2009Q1

REPORT INFORMATION
  Report Type: 
  Country: None (occurrence: None)
  Receive Date: 20090220
  Receipt Date: 20090220
  Transmission Date: 20090719
  Serious: Yes (Death)
  Sender: FDA-Public Use
  Company Number: AU-B.I. PHARMACEUTICALS,INC./RIDGEFIELD-2009-AU-00020AU

PATIENT

DRUGS (1)
  1. SPIRIVA [Suspect]

REACTIONS (1)
  - MYOCARDIAL INFARCTION [None]
